FAERS Safety Report 7198527-5 (Version None)
Quarter: 2010Q4

REPORT INFORMATION
  Report Type: 
  Country: None (occurrence: None)
  Receive Date: 20101227
  Receipt Date: 20101223
  Transmission Date: 20110411
  Serious: Yes (Death, Other)
  Sender: FDA-Public Use
  Company Number: PHHY2010US83862

PATIENT
  Sex: Male

DRUGS (1)
  1. NEORAL [Suspect]
     Indication: RENAL AND PANCREAS TRANSPLANT
     Dosage: 125MG, BID
     Route: 048
     Dates: start: 20100802

REACTIONS (3)
  - DEATH [None]
  - DIALYSIS [None]
  - UNRESPONSIVE TO STIMULI [None]
